FAERS Safety Report 23310054 (Version 1)
Quarter: 2023Q4

REPORT INFORMATION
  Report Type: Spontaneous
  Country: US (occurrence: None)
  Receive Date: 20231218
  Receipt Date: 20231218
  Transmission Date: 20240109
  Serious: Yes (Other)
  Sender: FDA-Public Use
  Company Number: None

PATIENT
  Age: 40 Year
  Sex: Female
  Weight: 72 kg

DRUGS (1)
  1. SCOPOLAMINE [Suspect]
     Active Substance: SCOPOLAMINE
     Indication: Anaesthetic premedication
     Dates: start: 20231211, end: 20231213

REACTIONS (10)
  - Paranoia [None]
  - Vomiting [None]
  - Nausea [None]
  - Hallucination [None]
  - Self-injurious ideation [None]
  - Anxiety [None]
  - Panic attack [None]
  - Hypersensitivity [None]
  - Brain fog [None]
  - Vision blurred [None]

NARRATIVE: CASE EVENT DATE: 20231212
